FAERS Safety Report 16086631 (Version 1)
Quarter: 2019Q1

REPORT INFORMATION
  Report Type: Spontaneous
  Country: US (occurrence: US)
  Receive Date: 20190318
  Receipt Date: 20190318
  Transmission Date: 20190418
  Serious: No
  Sender: FDA-Public Use
  Company Number: PHEH2019US011163

PATIENT
  Sex: Female

DRUGS (2)
  1. ADAPALENE. [Concomitant]
     Active Substance: ADAPALENE
     Indication: ACNE
     Dosage: UNK
     Route: 065
     Dates: start: 2018
  2. CLINDAMYCIN. [Suspect]
     Active Substance: CLINDAMYCIN
     Indication: ACNE
     Dosage: UNK
     Route: 061
     Dates: start: 2016

REACTIONS (1)
  - Drug effect decreased [Unknown]
